FAERS Safety Report 5973405-5 (Version None)
Quarter: 2008Q4

REPORT INFORMATION
  Report Type: 
  Country: None (occurrence: None)
  Receive Date: 20081125
  Receipt Date: 20081105
  Transmission Date: 20090506
  Serious: Yes (Death, Hospitalization, Other)
  Sender: FDA-Public Use
  Company Number: A-US2008-22792

PATIENT
  Age: 41 Year
  Sex: Female

DRUGS (12)
  1. TRACLEER [Suspect]
     Indication: PULMONARY ARTERIAL HYPERTENSION
     Dosage: ORAL
     Route: 048
     Dates: start: 20041021
  2. VENTAVIS [Suspect]
     Indication: PULMONARY ARTERIAL HYPERTENSION
     Dosage: 5 UG, RESPIRATORY
     Route: 055
     Dates: start: 20061114
  3. VIAGRA [Concomitant]
  4. PROCHLORPERAZINE MALEATE [Concomitant]
  5. LACTULOSE [Concomitant]
  6. PANTOPRAZOLE SODIUM [Concomitant]
  7. LEVOTHYROXINE SODIUM [Concomitant]
  8. ACETAMINOPHEN W/CODEINE (PARACETAMOL, CODEINE) [Concomitant]
  9. PENICILLIN [Concomitant]
  10. TAZOBACTAM [Concomitant]
  11. DOPAMINE HCL [Concomitant]
  12. COUMADIN [Concomitant]

REACTIONS (14)
  - COAGULOPATHY [None]
  - ELECTROMECHANICAL DISSOCIATION [None]
  - ESCHERICHIA INFECTION [None]
  - HAEMOGLOBIN DECREASED [None]
  - HAEMORRHOIDS [None]
  - HEART RATE IRREGULAR [None]
  - HEPATIC CIRRHOSIS [None]
  - HYPONATRAEMIA [None]
  - HYPOTENSION [None]
  - PANCREATITIS [None]
  - RECTAL HAEMORRHAGE [None]
  - RENAL FAILURE ACUTE [None]
  - TACHYPNOEA [None]
  - UROSEPSIS [None]
